FAERS Safety Report 7445814-9 (Version None)
Quarter: 2011Q2

REPORT INFORMATION
  Report Type: 
  Country: None (occurrence: None)
  Receive Date: 20110429
  Receipt Date: 20110418
  Transmission Date: 20111010
  Serious: Yes (Other)
  Sender: FDA-Public Use
  Company Number: PHHY2011AU32674

PATIENT
  Sex: Female

DRUGS (1)
  1. ZOMETA [Suspect]
     Dosage: UNK
     Dates: start: 20100201, end: 20110301

REACTIONS (5)
  - PAIN IN JAW [None]
  - BURNING SENSATION [None]
  - TOOTHACHE [None]
  - HYPOAESTHESIA ORAL [None]
  - MASTICATION DISORDER [None]
